FAERS Safety Report 4972841-3 (Version None)
Quarter: 2006Q2

REPORT INFORMATION
  Report Type: 
  Country: None (occurrence: None)
  Receive Date: 20060410
  Receipt Date: 20060401
  Transmission Date: 20061013
  Serious: Yes (Other)
  Sender: FDA-Public Use
  Company Number: 163-20785-04100152

PATIENT
  Sex: Male

DRUGS (2)
  1. THALOMID [Suspect]
     Indication: PROSTATIC INTRAEPITHELIAL NEOPLASIA
     Dosage: 200 MG, DAILY, ORAL
     Route: 048
     Dates: start: 20020114
  2. LEUPROLIDE ACETATE [Suspect]
     Indication: PROSTATIC INTRAEPITHELIAL NEOPLASIA
     Dosage: (L) 7.5 MG IM OR (G) 3.5 MG SC EVERY 28 DAYS FOR 6 CYCLES OR (L) 22.5 MG IM OR (G) 10.8MG SC EVERY 8
     Route: 030
     Dates: start: 20020114

REACTIONS (24)
  - ASPARTATE AMINOTRANSFERASE ABNORMAL [None]
  - ASTHENIA [None]
  - BLOOD BILIRUBIN ABNORMAL [None]
  - BLOOD CREATINE PHOSPHOKINASE ABNORMAL [None]
  - CONSTIPATION [None]
  - DISEASE PROGRESSION [None]
  - DIZZINESS [None]
  - DRY EYE [None]
  - DRY MOUTH [None]
  - DYSGEUSIA [None]
  - FATIGUE [None]
  - HAEMOGLOBIN ABNORMAL [None]
  - HEADACHE [None]
  - HOT FLUSH [None]
  - HYPONATRAEMIA [None]
  - HYPOTHYROIDISM [None]
  - LETHARGY [None]
  - MALAISE [None]
  - MUSCLE SPASMS [None]
  - OEDEMA [None]
  - PAIN [None]
  - PAIN IN EXTREMITY [None]
  - PERIPHERAL SENSORY NEUROPATHY [None]
  - PROSTATIC INTRAEPITHELIAL NEOPLASIA [None]
